FAERS Safety Report 16651138 (Version 2)
Quarter: 2019Q3

REPORT INFORMATION
  Report Type: Spontaneous
  Country: US (occurrence: US)
  Receive Date: 20190731
  Receipt Date: 20190904
  Transmission Date: 20191004
  Serious: No
  Sender: FDA-Public Use
  Company Number: US-NXDC-GLE-0031-2019

PATIENT
  Age: 52 Year
  Sex: Male
  Weight: 112 kg

DRUGS (5)
  1. GLEOLAN [Suspect]
     Active Substance: AMINOLEVULINIC ACID HYDROCHLORIDE
     Indication: GLIOBLASTOMA MULTIFORME
     Dosage: 75 ML
     Dates: start: 20190705, end: 20190705
  2. CETIRIZINE [Concomitant]
     Active Substance: CETIRIZINE HYDROCHLORIDE
     Dosage: 10MG TABLET DAILY
  3. PRINIVIL [Concomitant]
     Active Substance: LISINOPRIL
     Dosage: 40MG TABLET DAILY
  4. ALBUTEROL. [Concomitant]
     Active Substance: ALBUTEROL
     Dosage: 90MCG/ACTUATION INHALER
  5. KEPPRA [Concomitant]
     Active Substance: LEVETIRACETAM
     Dosage: 1000MG BID

REACTIONS (1)
  - Drug ineffective [Recovered/Resolved]

NARRATIVE: CASE EVENT DATE: 20190705
